FAERS Safety Report 6315868-1 (Version None)
Quarter: 2009Q3

REPORT INFORMATION
  Report Type: 
  Country: None (occurrence: None)
  Receive Date: 20090820
  Receipt Date: 20090810
  Transmission Date: 20100115
  Serious: Yes (Hospitalization)
  Sender: FDA-Public Use
  Company Number: US-JNJFOC-20090504098

PATIENT
  Sex: Male
  Weight: 110.22 kg

DRUGS (14)
  1. REMICADE [Suspect]
     Route: 042
  2. REMICADE [Suspect]
     Route: 042
  3. REMICADE [Suspect]
     Indication: RHEUMATOID ARTHRITIS
     Route: 042
  4. ANAPRIL [Concomitant]
     Indication: HYPERTENSION
  5. METOPROLOL [Concomitant]
  6. LEVOTHYROXINE [Concomitant]
     Indication: HYPOTHYROIDISM
  7. METHOTREXATE [Concomitant]
     Indication: RHEUMATOID ARTHRITIS
     Dosage: DURATION OF 3-4 YEARS
  8. FOLIC ACID [Concomitant]
     Dosage: TAKEN 3-4 YEARS
  9. COUMADIN [Concomitant]
     Indication: ATRIAL FIBRILLATION
  10. MULTI-VITAMINS [Concomitant]
     Indication: VITAMIN SUPPLEMENTATION
  11. CALCIUM WITH VITAMIN D [Concomitant]
  12. POTASSIUM CHLORIDE [Concomitant]
     Indication: DRUG USE FOR UNKNOWN INDICATION
  13. DIGOXIN [Concomitant]
     Indication: ATRIAL FIBRILLATION
  14. FUROSEMIDE [Concomitant]
     Indication: DIURETIC THERAPY

REACTIONS (2)
  - ATRIAL FIBRILLATION [None]
  - DISEASE RECURRENCE [None]
